FAERS Safety Report 12924132 (Version 2)
Quarter: 2017Q1

REPORT INFORMATION
  Report Type: Report from Study
  Country: US (occurrence: US)
  Receive Date: 20161108
  Receipt Date: 20170206
  Transmission Date: 20170428
  Serious: Yes (Hospitalization)
  Sender: FDA-Public Use
  Company Number: US-JNJFOC-20160817249

PATIENT
  Age: 72 Year
  Sex: Male

DRUGS (5)
  1. VITAMIN C [Concomitant]
     Active Substance: ASCORBIC ACID
  2. IMBRUVICA [Suspect]
     Active Substance: IBRUTINIB
     Indication: NON-HODGKIN^S LYMPHOMA
     Route: 048
     Dates: start: 20160723, end: 2016
  3. LOTREL [Concomitant]
     Active Substance: AMLODIPINE BESYLATE\BENAZEPRIL HYDROCHLORIDE
  4. ZINC. [Concomitant]
     Active Substance: ZINC
  5. PREDNISOLONE. [Concomitant]
     Active Substance: PREDNISOLONE

REACTIONS (8)
  - Dyspnoea [Recovered/Resolved]
  - Arthralgia [Unknown]
  - Rash [Unknown]
  - Night sweats [Unknown]
  - Bone pain [Unknown]
  - Pneumonitis [Recovered/Resolved]
  - Vocal cord disorder [Unknown]
  - Cough [Unknown]

NARRATIVE: CASE EVENT DATE: 20161006
